FAERS Safety Report 18526522 (Version 4)
Quarter: 2021Q1

REPORT INFORMATION
  Report Type: Report from Study
  Country: BR (occurrence: BR)
  Receive Date: 20201120
  Receipt Date: 20210120
  Transmission Date: 20210419
  Serious: Yes (Other)
  Sender: FDA-Public Use
  Company Number: BR-UCBSA-2020046260

PATIENT
  Sex: Female
  Weight: 67 kg

DRUGS (8)
  1. SULFASALAZINE. [Suspect]
     Active Substance: SULFASALAZINE
     Indication: RHEUMATOID ARTHRITIS
     Dosage: 500 MILLIGRAM 1 YEAR
     Route: 048
     Dates: start: 2019
  2. HIDROCLOROTIAZIDA [Concomitant]
     Active Substance: HYDROCHLOROTHIAZIDE
     Indication: HYPERTENSION
     Dosage: 20 MILLIGRAM MORE THAN 5
     Route: 048
  3. AZULFIDINE [Concomitant]
     Active Substance: SULFASALAZINE
     Indication: RHEUMATOID ARTHRITIS
     Dosage: 500 MILLIGRAM, 2X/DAY (BID)
     Route: 048
     Dates: start: 2019
  4. DIPIRONA [Concomitant]
     Active Substance: METAMIZOLE
     Indication: ARTHRALGIA
     Dosage: 500 MILLIGRAM, 4X/DAY (QID)
     Route: 048
     Dates: start: 2020
  5. LEFLUNOMIDA [Concomitant]
     Active Substance: LEFLUNOMIDE
     Indication: RHEUMATOID ARTHRITIS
     Dosage: 20 MILLIGRAM, ONCE DAILY (QD)
     Route: 048
     Dates: start: 2014
  6. NAPROXENO [NAPROXEN] [Concomitant]
     Active Substance: NAPROXEN
     Indication: ARTHRALGIA
     Dosage: 500 GRAM, 2X/DAY (BID)
     Route: 048
  7. CERTOLIZUMAB PEGOL RA [Suspect]
     Active Substance: CERTOLIZUMAB PEGOL
     Indication: RHEUMATOID ARTHRITIS
     Dosage: 200 MILLIGRAM, EV 15 DAYS
     Route: 058
     Dates: start: 201904, end: 20201226
  8. CHLORTHIAZIDE [Concomitant]
     Active Substance: CHLOROTHIAZIDE
     Indication: HYPERTENSION
     Dosage: 150 MILLIGRAM, ONCE DAILY (QD)
     Route: 048
     Dates: start: 2017

REACTIONS (8)
  - Product distribution issue [Unknown]
  - Hypersensitivity [Not Recovered/Not Resolved]
  - Headache [Recovering/Resolving]
  - Therapy interrupted [Unknown]
  - Alopecia [Recovering/Resolving]
  - Rheumatoid arthritis [Recovering/Resolving]
  - Drug ineffective [Unknown]
  - Intentional product misuse [Unknown]

NARRATIVE: CASE EVENT DATE: 2019
